FAERS Safety Report 4423991-1 (Version None)
Quarter: 2004Q3

REPORT INFORMATION
  Report Type: 
  Country: None (occurrence: None)
  Receive Date: 20040812
  Receipt Date: 20040803
  Transmission Date: 20050211
  Serious: Yes (Other)
  Sender: FDA-Public Use
  Company Number: 200417754GDDC

PATIENT
  Age: 37 Year
  Sex: Female
  Weight: 69 kg

DRUGS (3)
  1. FEXOFENADINE HCL [Suspect]
     Indication: URTICARIA
     Route: 048
     Dates: start: 20040628, end: 20040701
  2. CITALOPRAM [Concomitant]
     Indication: DEPRESSION
     Route: 048
     Dates: start: 20020101
  3. IRON SULPHATE [Concomitant]
     Indication: ANAEMIA
     Route: 048
     Dates: start: 20040501

REACTIONS (4)
  - AGITATION [None]
  - DISORIENTATION [None]
  - MOOD ALTERED [None]
  - SELF-INJURIOUS IDEATION [None]
